FAERS Safety Report 9339353 (Version 1)
Quarter: 2013Q2

REPORT INFORMATION
  Report Type: Spontaneous
  Country: US (occurrence: US)
  Receive Date: 20130610
  Receipt Date: 20130610
  Transmission Date: 20140414
  Serious: Yes (Hospitalization)
  Sender: FDA-Public Use
  Company Number: US-NOVOPROD-376364

PATIENT
  Age: 11 Year
  Sex: Female
  Weight: 29.48 kg

DRUGS (2)
  1. NORDITROPIN FLEXPRO 10 MG/ML [Suspect]
     Indication: GROWTH HORMONE DEFICIENCY
     Dosage: 1.3 MG HS
     Route: 058
     Dates: start: 20130402, end: 20130411
  2. NORDITROPIN FLEXPRO 10 MG/ML [Suspect]
     Dosage: 0.5 U/KG/WEEK
     Route: 058
     Dates: start: 20130422

REACTIONS (1)
  - Migraine [Recovered/Resolved]
